FAERS Safety Report 5096794-5 (Version None)
Quarter: 2006Q3

REPORT INFORMATION
  Report Type: 
  Country: None (occurrence: None)
  Receive Date: 20060831
  Receipt Date: 20060821
  Transmission Date: 20061208
  Serious: Yes (Life-Threatening, Hospitalization)
  Sender: FDA-Public Use
  Company Number: 2006100644

PATIENT
  Sex: Female

DRUGS (1)
  1. AROMASIN [Suspect]
     Indication: BREAST CANCER FEMALE
     Dosage: 20 MG (DAILY), ORAL
     Route: 048
     Dates: start: 20040401, end: 20060501

REACTIONS (2)
  - BLOOD SODIUM DECREASED [None]
  - DEMYELINATION [None]
